FAERS Safety Report 12001009 (Version 4)
Quarter: 2016Q2

REPORT INFORMATION
  Report Type: Report from Study
  Country: BE (occurrence: BE)
  Receive Date: 20160204
  Receipt Date: 20160419
  Transmission Date: 20160815
  Serious: Yes (Death, Hospitalization)
  Sender: FDA-Public Use
  Company Number: BE-ABBVIE-16P-013-1549677-00

PATIENT
  Sex: Male

DRUGS (3)
  1. DUODOPA [Suspect]
     Active Substance: CARBIDOPA\LEVODOPA
     Dosage: DOSES CONTINUOUSLY MONITORED AND ADAPTED.
     Route: 050
     Dates: start: 20140214, end: 20150921
  2. DUODOPA [Suspect]
     Active Substance: CARBIDOPA\LEVODOPA
     Dosage: AM=0ML; CD=4.6ML/H FOR 16HRS; ED=0ML; ND=3.6ML FOR 8HRS
     Route: 050
     Dates: start: 20150921
  3. DUODOPA [Suspect]
     Active Substance: CARBIDOPA\LEVODOPA
     Indication: PARKINSON^S DISEASE
     Dosage: AM=9ML; CD=4.6ML/H FOR 16HRS; ED=2.5ML
     Route: 050
     Dates: start: 20140210, end: 20140214

REACTIONS (3)
  - Death [Fatal]
  - Lung infection [Unknown]
  - Pneumonia [Unknown]
